FAERS Safety Report 4275591-4 (Version None)
Quarter: 2004Q1

REPORT INFORMATION
  Report Type: 
  Country: None (occurrence: None)
  Receive Date: 20040116
  Receipt Date: 20040105
  Transmission Date: 20041129
  Serious: No
  Sender: FDA-Public Use
  Company Number: US-JNJFOC-20031006428

PATIENT
  Sex: Female

DRUGS (1)
  1. REMICADE [Suspect]
     Dosage: 300 MG, INTRAVENOUS
     Route: 042

REACTIONS (1)
  - TUBERCULIN TEST POSITIVE [None]
